FAERS Safety Report 4630266-4 (Version None)
Quarter: 2005Q2

REPORT INFORMATION
  Report Type: 
  Country: None (occurrence: None)
  Receive Date: 20050408
  Receipt Date: 20050317
  Transmission Date: 20051028
  Serious: Yes (Hospitalization)
  Sender: FDA-Public Use
  Company Number: PHEH2005US03451

PATIENT
  Age: 44 Year
  Sex: Male
  Weight: 70 kg

DRUGS (3)
  1. LAMISIL [Suspect]
     Indication: BODY TINEA
     Dosage: 250 MG, QD
     Route: 048
     Dates: start: 20050312, end: 20050315
  2. VITAMINS [Concomitant]
  3. ADVIL [Concomitant]

REACTIONS (4)
  - CEREBROVASCULAR ACCIDENT [None]
  - CHEST PAIN [None]
  - DRUG TOXICITY [None]
  - PLEURITIC PAIN [None]
